FAERS Safety Report 9526562 (Version 1)
Quarter: 2013Q3

REPORT INFORMATION
  Report Type: Spontaneous
  Country: US (occurrence: US)
  Receive Date: 20130916
  Receipt Date: 20130916
  Transmission Date: 20140515
  Serious: No
  Sender: FDA-Public Use
  Company Number: US-PFIZER INC-2013262935

PATIENT
  Age: 65 Year
  Sex: Female

DRUGS (2)
  1. ADVIL [Suspect]
     Indication: ARTHRITIS
     Dosage: 400 MG (2 X 200MG), TWO TIMES A DAY (MORNING AND EVENING)
     Route: 048
     Dates: start: 2013, end: 20130910
  2. IBUPROFEN [Concomitant]
     Indication: ARTHRITIS
     Dosage: UNK

REACTIONS (1)
  - Abdominal discomfort [Not Recovered/Not Resolved]
